FAERS Safety Report 15501211 (Version 1)
Quarter: 2018Q4

REPORT INFORMATION
  Report Type: Spontaneous
  Country: US (occurrence: US)
  Receive Date: 20181015
  Receipt Date: 20181015
  Transmission Date: 20190205
  Serious: No
  Sender: FDA-Public Use
  Company Number: US-SUNOVION-2018SUN003937

PATIENT

DRUGS (1)
  1. LATUDA [Suspect]
     Active Substance: LURASIDONE HYDROCHLORIDE
     Indication: MOOD SWINGS
     Dosage: UNK
     Route: 048

REACTIONS (4)
  - Restless legs syndrome [Unknown]
  - Hypersomnia [Unknown]
  - Off label use [Unknown]
  - Insomnia [Unknown]
